FAERS Safety Report 13014318 (Version 4)
Quarter: 2017Q1

REPORT INFORMATION
  Report Type: Spontaneous
  Country: US (occurrence: US)
  Receive Date: 20161209
  Receipt Date: 20170309
  Transmission Date: 20170428
  Serious: Yes (Hospitalization)
  Sender: FDA-Public Use
  Company Number: US-UNITED THERAPEUTICS-UNT-2016-018527

PATIENT
  Age: 21 Year
  Sex: Female
  Weight: 98.87 kg

DRUGS (3)
  1. ADCIRCA [Concomitant]
     Active Substance: TADALAFIL
     Indication: PRODUCT USED FOR UNKNOWN INDICATION
  2. REMODULIN [Suspect]
     Active Substance: TREPROSTINIL
     Indication: PULMONARY ARTERIAL HYPERTENSION
     Dosage: 0.0125 ?G/KG, CONTINUING
     Route: 041
     Dates: start: 20160725
  3. REMODULIN [Suspect]
     Active Substance: TREPROSTINIL
     Dosage: 0.015 ?G/KG, CONTINUING
     Route: 041

REACTIONS (3)
  - Suture rupture [Unknown]
  - Premature labour [Unknown]
  - Pregnancy [Unknown]

NARRATIVE: CASE EVENT DATE: 2016
